FAERS Safety Report 25508653 (Version 1)
Quarter: 2025Q3

REPORT INFORMATION
  Report Type: Spontaneous
  Country: AU (occurrence: AU)
  Receive Date: 20250703
  Receipt Date: 20250703
  Transmission Date: 20251021
  Serious: Yes (Other)
  Sender: STRIDES
  Company Number: AU-STRIDES ARCOLAB LIMITED-2025SP008075

PATIENT
  Age: 74 Year
  Sex: Female

DRUGS (2)
  1. METHOTREXATE [Suspect]
     Active Substance: METHOTREXATE
     Indication: Spondylitis
     Route: 065
  2. METHOTREXATE [Suspect]
     Active Substance: METHOTREXATE
     Indication: Multiple sclerosis

REACTIONS (3)
  - Multiple sclerosis [Unknown]
  - Arthritis [Unknown]
  - Off label use [Unknown]
